FAERS Safety Report 10746145 (Version 1)
Quarter: 2015Q1

REPORT INFORMATION
  Report Type: Spontaneous
  Country: FR (occurrence: FR)
  Receive Date: 20150128
  Receipt Date: 20150128
  Transmission Date: 20150721
  Serious: Yes (Hospitalization)
  Sender: FDA-Public Use
  Company Number: FR-PFIZER INC-2015024821

PATIENT
  Age: 30 Year
  Sex: Female

DRUGS (3)
  1. CYTOTEC [Suspect]
     Active Substance: MISOPROSTOL
     Dosage: 200 ?G, SINGLE
     Route: 067
     Dates: start: 20141214, end: 20141214
  2. MIFEGYNE [Suspect]
     Active Substance: MIFEPRISTONE
     Dosage: 600 MG, SINGLE
     Route: 048
     Dates: start: 20141212, end: 20141212
  3. FIVASA [Suspect]
     Active Substance: MESALAMINE
     Indication: CROHN^S DISEASE
     Dosage: 800 MG, 2X/DAY
     Route: 048
     Dates: start: 20110501, end: 20141218

REACTIONS (3)
  - Congestive cardiomyopathy [Not Recovered/Not Resolved]
  - Off label use [Unknown]
  - Acute pulmonary oedema [Not Recovered/Not Resolved]

NARRATIVE: CASE EVENT DATE: 20141214
